FAERS Safety Report 10408611 (Version 1)
Quarter: 2014Q3

REPORT INFORMATION
  Report Type: Spontaneous
  Country: US (occurrence: None)
  Receive Date: 20140825
  Receipt Date: 20140825
  Transmission Date: 20150326
  Serious: Yes (Hospitalization)
  Sender: FDA-Public Use
  Company Number: None

PATIENT
  Age: 65 Year
  Sex: Female
  Weight: 68.6 kg

DRUGS (14)
  1. MULTIVTIAMIN [Concomitant]
  2. ANASTROZOLE. [Concomitant]
     Active Substance: ANASTROZOLE
  3. CEPHALEXIN. [Concomitant]
     Active Substance: CEPHALEXIN
  4. NOVOLOG [Concomitant]
     Active Substance: INSULIN ASPART
  5. AMLODIPINE [Concomitant]
     Active Substance: AMLODIPINE BESYLATE
  6. POTASSIUM PHOSPHATE MONOBASIC [Concomitant]
     Active Substance: POTASSIUM PHOSPHATE, MONOBASIC
  7. BUMETANIDE. [Concomitant]
     Active Substance: BUMETANIDE
  8. PREDNISONE. [Concomitant]
     Active Substance: PREDNISONE
  9. PREVACID [Concomitant]
     Active Substance: LANSOPRAZOLE
  10. SIMEPREVIR [Suspect]
     Active Substance: SIMEPREVIR
     Indication: HEPATITIS C
     Dosage: 150 1X DAILY
     Dates: start: 20140227, end: 20140522
  11. GABAPENTIN. [Concomitant]
     Active Substance: GABAPENTIN
  12. SOFOSBUVIR [Suspect]
     Active Substance: SOFOSBUVIR
     Indication: HEPATITIS C
     Dosage: 400 1X DAILY
     Dates: start: 20140227, end: 20140522
  13. TACROLIMUS. [Concomitant]
     Active Substance: TACROLIMUS
  14. MAGNESIUM [Concomitant]
     Active Substance: MAGNESIUM

REACTIONS (6)
  - Fluid overload [None]
  - Urinary tract infection [None]
  - Avulsion fracture [None]
  - Hand fracture [None]
  - Oedema peripheral [None]
  - Atelectasis [None]

NARRATIVE: CASE EVENT DATE: 20140410
